FAERS Safety Report 17848177 (Version 4)
Quarter: 2022Q3

REPORT INFORMATION
  Report Type: Report from Study
  Country: US (occurrence: US)
  Receive Date: 20200601
  Receipt Date: 20220817
  Transmission Date: 20221027
  Serious: Yes (Hospitalization, Other)
  Sender: FDA-Public Use
  Company Number: US-TAKEDA-2020TUS024384

PATIENT
  Age: 54 Year
  Sex: Female

DRUGS (3)
  1. IXAZOMIB [Suspect]
     Active Substance: IXAZOMIB
     Indication: Plasma cell myeloma
     Dosage: 4 MILLIGRAM
     Route: 065
     Dates: start: 20200420, end: 202204
  2. AMIODARONE [Concomitant]
     Active Substance: AMIODARONE
     Indication: Heart rate increased
     Dosage: 200 MILLIGRAM
  3. AMIODARONE [Concomitant]
     Active Substance: AMIODARONE
     Indication: Dyspnoea

REACTIONS (7)
  - Heart rate increased [Unknown]
  - Dyspnoea [Unknown]
  - Plasma cell myeloma [Unknown]
  - Bone pain [Not Recovered/Not Resolved]
  - Muscle spasms [Not Recovered/Not Resolved]
  - Vomiting [Not Recovered/Not Resolved]
  - Product dose omission issue [Unknown]

NARRATIVE: CASE EVENT DATE: 20220218
